FAERS Safety Report 20972041 (Version 3)
Quarter: 2024Q3

REPORT INFORMATION
  Report Type: Spontaneous
  Country: US (occurrence: US)
  Receive Date: 20220616
  Receipt Date: 20240728
  Transmission Date: 20241017
  Serious: No
  Sender: SANOFI AVENTIS
  Company Number: US-SA-SAC20220614000169

PATIENT
  Age: 62 Year
  Sex: Female

DRUGS (35)
  1. DUPIXENT [Suspect]
     Active Substance: DUPILUMAB
     Indication: Dermatitis atopic
     Dosage: 300 MG, QOW
     Route: 058
     Dates: start: 20210227
  2. ASPIRIN [Concomitant]
     Active Substance: ASPIRIN
     Dosage: UNK
  3. ATORVASTATIN [Concomitant]
     Active Substance: ATORVASTATIN
     Dosage: UNK
  4. CYCLOBENZAPRINE HYDROCHLORIDE [Concomitant]
     Active Substance: CYCLOBENZAPRINE HYDROCHLORIDE
     Dosage: 40 MG
  5. DICLOFENAC [Concomitant]
     Active Substance: DICLOFENAC
     Indication: Osteoarthritis
  6. FLUCONAZOLE [Concomitant]
     Active Substance: FLUCONAZOLE
     Dosage: UNK
  7. LORATADINE [Concomitant]
     Active Substance: LORATADINE
     Dosage: UNK
  8. LOSARTAN POTASSIUM [Concomitant]
     Active Substance: LOSARTAN POTASSIUM
     Dosage: UNK
  9. METFORMIN [Concomitant]
     Active Substance: METFORMIN HYDROCHLORIDE
     Dosage: UNK
  10. PREDNISONE [Concomitant]
     Active Substance: PREDNISONE
     Dosage: UNK
  11. TACROLIMUS [Concomitant]
     Active Substance: TACROLIMUS
     Dosage: UNK
  12. VALACYCLOVIR [Concomitant]
     Active Substance: VALACYCLOVIR HYDROCHLORIDE
     Dosage: UNK
  13. VENLAFAXINE [Concomitant]
     Active Substance: VENLAFAXINE HYDROCHLORIDE
     Dosage: UNK
  14. CHOLECALCIFEROL [Concomitant]
     Active Substance: CHOLECALCIFEROL
     Dosage: UNK
  15. ACETAMINOPHEN [Concomitant]
     Active Substance: ACETAMINOPHEN
     Dosage: UNK
  16. ASPIRIN [Concomitant]
     Active Substance: ASPIRIN
     Dosage: UNK
  17. BETAMETHASONE DIPROPIONATE [Concomitant]
     Active Substance: BETAMETHASONE DIPROPIONATE
     Dosage: UNK
  18. HYDROXYZINE HYDROCHLORIDE [Concomitant]
     Active Substance: HYDROXYZINE HYDROCHLORIDE
     Dosage: UNK
  19. HYDROCHLOROTHIAZIDE\LOSARTAN POTASSIUM [Concomitant]
     Active Substance: HYDROCHLOROTHIAZIDE\LOSARTAN POTASSIUM
     Dosage: UNK
  20. REFRESH LACRI-LUBE [Concomitant]
     Active Substance: MINERAL OIL\PETROLATUM
     Dosage: UNK
  21. ACETAMINOPHEN [Concomitant]
     Active Substance: ACETAMINOPHEN
     Dosage: UNK
  22. LUBRICATING PLUS [Concomitant]
     Active Substance: CARBOXYMETHYLCELLULOSE SODIUM
     Dosage: UNK
  23. TOBRAMICINA DEXAMETASONA [Concomitant]
     Dosage: UNK
  24. CALCIUM [Concomitant]
     Active Substance: CALCIUM
     Dosage: 50000 IU
  25. CAPSAICIN [Concomitant]
     Active Substance: CAPSAICIN
     Dosage: UNK
  26. BETAMETHASONE CLOTRIMAZOLE [Concomitant]
     Active Substance: BETAMETHASONE DIPROPIONATE\CLOTRIMAZOLE
     Dosage: UNK
  27. FLUOCINONIDE [Concomitant]
     Active Substance: FLUOCINONIDE
     Dosage: UNK
  28. GABAPENTIN [Concomitant]
     Active Substance: GABAPENTIN
     Dosage: UNK
  29. NAPROXEN [Concomitant]
     Active Substance: NAPROXEN
     Dosage: UNK
  30. METHYLPREDNISOLONE [Concomitant]
     Active Substance: METHYLPREDNISOLONE
     Dosage: UNK
  31. FERROUS SULFATE [Concomitant]
     Active Substance: FERROUS SULFATE
     Dosage: UNK
  32. MINERALS\VITAMINS [Concomitant]
     Active Substance: MINERALS\VITAMINS
  33. CLOTRIMAZOLE [Concomitant]
     Active Substance: CLOTRIMAZOLE
     Dosage: UNK
  34. ATORVASTATIN [Concomitant]
     Active Substance: ATORVASTATIN
     Dosage: UNK
  35. FLUOCINONIDE [Concomitant]
     Active Substance: FLUOCINONIDE
     Dosage: UNK

REACTIONS (6)
  - Discomfort [Recovered/Resolved]
  - Sleep disorder [Recovered/Resolved]
  - Dermatitis atopic [Recovered/Resolved]
  - Dermatitis atopic [Recovering/Resolving]
  - Sleep disorder due to a general medical condition [Recovering/Resolving]
  - Discomfort [Recovering/Resolving]
